FAERS Safety Report 5797624-6 (Version None)
Quarter: 2008Q3

REPORT INFORMATION
  Report Type: 
  Country: None (occurrence: None)
  Receive Date: 20080702
  Receipt Date: 20080624
  Transmission Date: 20090109
  Serious: Yes (Hospitalization)
  Sender: FDA-Public Use
  Company Number: PT-JNJFOC-20080606128

PATIENT
  Age: 27 Year
  Sex: Female

DRUGS (4)
  1. REMICADE [Suspect]
     Indication: DRUG USE FOR UNKNOWN INDICATION
     Dosage: INDUCTION AND MAINTENANCE
     Route: 042
  2. MESALAMINE [Concomitant]
  3. PREDNISOLONE [Concomitant]
  4. AZATHIOPRINE [Concomitant]

REACTIONS (6)
  - BOWEL MOVEMENT IRREGULARITY [None]
  - NECROSIS [None]
  - OTITIS EXTERNA [None]
  - PURULENT DISCHARGE [None]
  - PYREXIA [None]
  - VOMITING [None]
